FAERS Safety Report 11192271 (Version 1)
Quarter: 2015Q2

REPORT INFORMATION
  Report Type: Spontaneous
  Country: US (occurrence: None)
  Receive Date: 20150612
  Receipt Date: 20150612
  Transmission Date: 20150821
  Serious: Yes (Hospitalization)
  Sender: FDA-Public Use
  Company Number: NSR_02135_2015

PATIENT
  Age: 68 Year
  Sex: Female

DRUGS (3)
  1. PREDNISONE. [Suspect]
     Active Substance: PREDNISONE
     Indication: TEMPORAL ARTERITIS
     Route: 048
  2. OPIOIDS [Suspect]
     Active Substance: UNSPECIFIED INGREDIENT
     Indication: PRODUCT USED FOR UNKNOWN INDICATION
     Dosage: DF
  3. BACLOFEN. [Suspect]
     Active Substance: BACLOFEN
     Indication: PAIN
     Dosage: DF

REACTIONS (8)
  - Vision blurred [None]
  - Condition aggravated [None]
  - Dialysis related complication [None]
  - Muscle strain [None]
  - Red blood cell sedimentation rate increased [None]
  - Delirium [None]
  - Tenderness [None]
  - Mental status changes [None]
